FAERS Safety Report 21926464 (Version 2)
Quarter: 2023Q1

REPORT INFORMATION
  Report Type: Spontaneous
  Country: FR (occurrence: FR)
  Receive Date: 20230130
  Receipt Date: 20230224
  Transmission Date: 20230418
  Serious: Yes (Hospitalization)
  Sender: FDA-Public Use
  Company Number: None

PATIENT
  Age: 82 Year
  Sex: Male
  Weight: 58.3 kg

DRUGS (10)
  1. LYRICA [Suspect]
     Active Substance: PREGABALIN
     Indication: Muscle tightness
     Dosage: UNK,UNKNOWN
     Route: 048
     Dates: start: 202210, end: 20221125
  2. BACLOFEN [Suspect]
     Active Substance: BACLOFEN
     Indication: Muscle tightness
     Dosage: UNK, UNKNOWN
     Route: 048
     Dates: start: 202210, end: 20221126
  3. SINEMET [Concomitant]
     Active Substance: CARBIDOPA\LEVODOPA
     Dosage: 3 DOSAGE FORM, QD, 100 MG/10MG
     Route: 048
  4. TAMSULOSIN HYDROCHLORIDE [Concomitant]
     Active Substance: TAMSULOSIN HYDROCHLORIDE
     Dosage: 1 DOSAGE FORM, QD
     Route: 048
  5. LACTULOSE [Concomitant]
     Active Substance: LACTULOSE
     Dosage: 1 DOSAGE FORM, QD, 10 G/15 ML, ORAL SOLUTION IN S
     Route: 048
  6. OMEPRAZOLE [Concomitant]
     Active Substance: OMEPRAZOLE
     Dosage: 1 DOSAGE FORM, QD
     Route: 048
  7. CELECTOL [Concomitant]
     Active Substance: CELIPROLOL HYDROCHLORIDE
     Dosage: 1 DOSAGE FORM, QD
     Route: 048
  8. INDAPAMIDE\PERINDOPRIL [Concomitant]
     Active Substance: INDAPAMIDE\PERINDOPRIL
     Dosage: 1 DOSAGE FORM, QD, 10 MG/2,5 MG,
     Route: 048
  9. LERCANIDIPINE HYDROCHLORIDE [Concomitant]
     Active Substance: LERCANIDIPINE HYDROCHLORIDE
     Dosage: 1 DOSAGE FORM, QD
     Route: 048
  10. CARBIDOPA\LEVODOPA [Concomitant]
     Active Substance: CARBIDOPA\LEVODOPA
     Dosage: 1 DOSAGE FORM, QD, 100 MG/25 MG,
     Route: 048

REACTIONS (2)
  - Vascular purpura [Not Recovered/Not Resolved]
  - Cutaneous vasculitis [Not Recovered/Not Resolved]

NARRATIVE: CASE EVENT DATE: 20221118
